FAERS Safety Report 17445766 (Version 2)
Quarter: 2020Q1

REPORT INFORMATION
  Report Type: Report from Study
  Country: US (occurrence: US)
  Receive Date: 20200221
  Receipt Date: 20200305
  Transmission Date: 20200409
  Serious: Yes (Other)
  Sender: FDA-Public Use
  Company Number: US-BRISTOL-MYERS SQUIBB COMPANY-BMS-2020-013336

PATIENT
  Sex: Female
  Weight: 72 kg

DRUGS (3)
  1. IPILIMUMAB [Suspect]
     Active Substance: IPILIMUMAB
     Indication: METASTATIC RENAL CELL CARCINOMA
     Dosage: 74 MILLIGRAM, Q3WK (21 DAYS)
     Route: 042
     Dates: start: 20190920, end: 20200113
  2. KEYTRUDA [Concomitant]
     Active Substance: PEMBROLIZUMAB
     Indication: PRODUCT USED FOR UNKNOWN INDICATION
     Route: 065
  3. NIVOLUMAB [Suspect]
     Active Substance: NIVOLUMAB
     Indication: METASTATIC RENAL CELL CARCINOMA
     Dosage: 222 MILLIGRAM, Q3WK (21 DAYS)
     Route: 042
     Dates: start: 20190920, end: 20200113

REACTIONS (5)
  - Anaemia [Unknown]
  - Prescribed overdose [Unknown]
  - Abdominal distension [Unknown]
  - Malignant neoplasm progression [Unknown]
  - Weight decreased [Unknown]
